FAERS Safety Report 20790106 (Version 1)
Quarter: 2022Q2

REPORT INFORMATION
  Report Type: Spontaneous
  Country: US (occurrence: None)
  Receive Date: 20220505
  Receipt Date: 20220505
  Transmission Date: 20220720
  Serious: Yes (Hospitalization)
  Sender: FDA-Public Use
  Company Number: None

PATIENT
  Sex: Male
  Weight: 112.6 kg

DRUGS (1)
  1. IOHEXOL [Suspect]
     Active Substance: IOHEXOL
     Dates: end: 20220414

REACTIONS (10)
  - Dyspnoea [None]
  - Cough [None]
  - Pyrexia [None]
  - Chills [None]
  - Upper respiratory tract infection [None]
  - Tachycardia [None]
  - Blood pressure systolic increased [None]
  - Blood lactic acid decreased [None]
  - Pneumonia [None]
  - Pulmonary embolism [None]

NARRATIVE: CASE EVENT DATE: 20220426
